FAERS Safety Report 9166729 (Version 5)
Quarter: 2013Q2

REPORT INFORMATION
  Report Type: Spontaneous
  Country: US (occurrence: US)
  Receive Date: 20130315
  Receipt Date: 20130524
  Transmission Date: 20140414
  Serious: Yes (Hospitalization, Other)
  Sender: FDA-Public Use
  Company Number: US-009507513-1203USA00028

PATIENT
  Sex: Female

DRUGS (12)
  1. FOSAMAX [Suspect]
     Indication: OSTEOPOROSIS
     Dosage: 10 MG, UNK
     Route: 048
     Dates: start: 20001017, end: 20040204
  2. FOSAMAX [Suspect]
     Indication: OSTEOPENIA
     Dosage: 70 MG, UNK
     Route: 048
     Dates: start: 20001017, end: 20040204
  3. ACTONEL [Suspect]
     Indication: OSTEOPOROSIS
     Dosage: 35 MG, QW
     Dates: start: 20040204, end: 20060213
  4. ACTONEL [Suspect]
     Indication: OSTEOPENIA
  5. SYNTHROID [Concomitant]
     Indication: HYPOTHYROIDISM
     Dosage: UNK
     Dates: start: 1974
  6. FORTEO [Suspect]
     Indication: OSTEOPOROSIS
     Dosage: UNK
     Dates: start: 20060213, end: 20071127
  7. EVISTA [Suspect]
     Indication: OSTEOPOROSIS
     Dosage: 60 MG, QD
     Dates: start: 20040204, end: 20060213
  8. CALCIUM (UNSPECIFIED) [Concomitant]
     Dosage: 1500 MG, QD
     Route: 048
     Dates: start: 1997
  9. VITAMIN D (UNSPECIFIED) [Concomitant]
     Dosage: UNK, QD
     Route: 048
     Dates: start: 1997
  10. ASCORBIC ACID [Concomitant]
  11. VITAMIN B (UNSPECIFIED) [Concomitant]
  12. VITAMIN E [Concomitant]

REACTIONS (36)
  - Intramedullary rod insertion [Recovered/Resolved]
  - Scapula fracture [Unknown]
  - Fall [Unknown]
  - Hand fracture [Unknown]
  - Hand fracture [Unknown]
  - Renal cell carcinoma [Recovered/Resolved]
  - Ovarian cyst [Recovered/Resolved]
  - Renal tumour excision [Unknown]
  - Hypoacusis [Unknown]
  - Femur fracture [Recovered/Resolved]
  - Medical device complication [Not Recovered/Not Resolved]
  - Laceration [Unknown]
  - Bursitis [Not Recovered/Not Resolved]
  - Corneal transplant [Unknown]
  - Urinary tract infection [Unknown]
  - Blood cholesterol increased [Not Recovered/Not Resolved]
  - Hyponatraemia [Unknown]
  - Hyperlipidaemia [Unknown]
  - Anaemia [Unknown]
  - Lumbar radiculopathy [Unknown]
  - Corneal dystrophy [Unknown]
  - Palpitations [Unknown]
  - Arrhythmia [Unknown]
  - Urinary tract infection [Unknown]
  - C-reactive protein increased [Unknown]
  - Stress urinary incontinence [Unknown]
  - Arrhythmia [Unknown]
  - Ecchymosis [Unknown]
  - Osteoarthritis [Unknown]
  - Soft tissue injury [Unknown]
  - Leukocytosis [Unknown]
  - Shift to the left [Unknown]
  - Musculoskeletal discomfort [Unknown]
  - Arthralgia [Unknown]
  - Pain in extremity [Unknown]
  - Back pain [Unknown]
